FAERS Safety Report 9525056 (Version 1)
Quarter: 2013Q1

REPORT INFORMATION
  Report Type: Spontaneous
  Country: US (occurrence: None)
  Receive Date: 20130314
  Receipt Date: 20130314
  Transmission Date: 20140127
  Serious: No
  Sender: FDA-Public Use
  Company Number: 1301USA005397

PATIENT
  Age: 56 Year
  Sex: Male

DRUGS (4)
  1. VICTRELIS (BOCEPREVIR) CAPSULE, 200MG [Suspect]
     Indication: HEPATITIS C
     Dosage: 800 MG, Q8H, ORAL
     Route: 048
     Dates: start: 2012
  2. PEGASYS (PEGINTERFERON ALFA-2A) [Suspect]
     Dosage: UNK
     Dates: start: 2012
  3. RIBASPHERE (RIBAVIRIN) [Suspect]
     Dosage: UNK
     Dates: start: 2012
  4. PROPRANOLOL HYDROCHLORIDE (PROPRANOLOL HYDROCHLORIDE) [Concomitant]

REACTIONS (1)
  - Adverse event [None]
